FAERS Safety Report 14523154 (Version 2)
Quarter: 2019Q1

REPORT INFORMATION
  Report Type: Report from Study
  Country: US (occurrence: US)
  Receive Date: 20180212
  Receipt Date: 20190215
  Transmission Date: 20190417
  Serious: Yes (Hospitalization)
  Sender: FDA-Public Use
  Company Number: US-AMAG PHARMACEUTICALS, INC.-AMAG201800246

PATIENT

DRUGS (3)
  1. MAKENA [Suspect]
     Active Substance: HYDROXYPROGESTERONE CAPROATE
     Indication: PREMATURE DELIVERY
     Dosage: 250 MG/ML, WEEKLY
     Route: 030
     Dates: start: 20171020
  2. PRENATAL MULTIVITAMIN + DHA [Concomitant]
     Indication: PREGNANCY
     Dosage: 1 TABS, QD
     Route: 065
  3. LEVOTHYROXINE. [Concomitant]
     Active Substance: LEVOTHYROXINE
     Indication: HYPOTHYROIDISM
     Dosage: 100 MCG, QD
     Route: 048
     Dates: start: 20171020

REACTIONS (3)
  - Hypotension [Recovered/Resolved]
  - Shortened cervix [Not Recovered/Not Resolved]
  - Uterine contractions during pregnancy [Not Recovered/Not Resolved]

NARRATIVE: CASE EVENT DATE: 20180109
